FAERS Safety Report 14688106 (Version 4)
Quarter: 2018Q3

REPORT INFORMATION
  Report Type: Spontaneous
  Country: US (occurrence: US)
  Receive Date: 20180328
  Receipt Date: 20180801
  Transmission Date: 20181010
  Serious: No
  Sender: FDA-Public Use
  Company Number: US-PFIZER INC-2018126794

PATIENT
  Age: 64 Year
  Sex: Male

DRUGS (1)
  1. XELJANZ XR [Suspect]
     Active Substance: TOFACITINIB CITRATE
     Dosage: 11 MG, 1X/DAY
     Route: 048

REACTIONS (9)
  - Mouth haemorrhage [Unknown]
  - Feeding disorder [Unknown]
  - Upper respiratory tract infection [Unknown]
  - Oral pain [Unknown]
  - Oral mucosal erythema [Unknown]
  - Oral candidiasis [Not Recovered/Not Resolved]
  - Stomatitis [Unknown]
  - Joint effusion [Unknown]
  - Influenza [Unknown]

NARRATIVE: CASE EVENT DATE: 201711
